FAERS Safety Report 4623432-5 (Version None)
Quarter: 2005Q1

REPORT INFORMATION
  Report Type: 
  Country: None (occurrence: None)
  Receive Date: 20050330
  Receipt Date: 20050316
  Transmission Date: 20050727
  Serious: Yes (Disabling, Other)
  Sender: FDA-Public Use
  Company Number: 2005046314

PATIENT
  Sex: Female

DRUGS (7)
  1. NEURONTIN [Suspect]
     Indication: ARTHRITIS
     Dosage: ORAL
     Route: 048
  2. BEXTRA [Suspect]
     Indication: ARTHRITIS
     Dosage: ORAL
     Route: 048
  3. GABAPENTIN [Suspect]
     Indication: ARTHRITIS
  4. OMEPRAZOLE [Concomitant]
  5. HYZAAR [Concomitant]
  6. RALOXIFENE HCL [Concomitant]
  7. DESIPRAMINE HCL [Concomitant]

REACTIONS (8)
  - ABASIA [None]
  - ARTHRITIS [None]
  - CONDITION AGGRAVATED [None]
  - CONVULSION [None]
  - DECREASED ACTIVITY [None]
  - DRUG INEFFECTIVE [None]
  - TREATMENT NONCOMPLIANCE [None]
  - WEIGHT INCREASED [None]
